FAERS Safety Report 13343748 (Version 1)
Quarter: 2017Q1

REPORT INFORMATION
  Report Type: Spontaneous
  Country: US (occurrence: US)
  Receive Date: 20170316
  Receipt Date: 20170316
  Transmission Date: 20170428
  Serious: No
  Sender: FDA-Public Use
  Company Number: US-PERRIGO-16US019299

PATIENT
  Age: 47 Year
  Sex: Male
  Weight: 113.38 kg

DRUGS (2)
  1. TESTOSTERONE. [Suspect]
     Active Substance: TESTOSTERONE
     Indication: BLOOD TESTOSTERONE DECREASED
     Dosage: 25 MG, QD TO ARMS AND CHEST
     Route: 061
     Dates: start: 2015
  2. TESTOSTERONE. [Suspect]
     Active Substance: TESTOSTERONE
     Dosage: APPROXIMATE DOSING OF 2 PUMPS, QD
     Route: 061
     Dates: start: 201607, end: 201608

REACTIONS (2)
  - Wrong technique in product usage process [Recovered/Resolved]
  - Drug administered at inappropriate site [Unknown]

NARRATIVE: CASE EVENT DATE: 201607
